FAERS Safety Report 12894848 (Version 1)
Quarter: 2016Q4

REPORT INFORMATION
  Report Type: Spontaneous
  Country: US (occurrence: US)
  Receive Date: 20161028
  Receipt Date: 20161028
  Transmission Date: 20170207
  Serious: Yes (Hospitalization, Other)
  Sender: FDA-Public Use
  Company Number: US-ASTRAZENECA-2016SF11111

PATIENT
  Age: 20 Year
  Sex: Female
  Weight: 53.5 kg

DRUGS (15)
  1. LOMOTIL [Concomitant]
     Active Substance: ATROPINE SULFATE\DIPHENOXYLATE HYDROCHLORIDE
  2. NEXIUM [Suspect]
     Active Substance: ESOMEPRAZOLE MAGNESIUM
     Indication: GASTROOESOPHAGEAL REFLUX DISEASE
     Route: 048
     Dates: start: 201604
  3. PREVACID [Concomitant]
     Active Substance: LANSOPRAZOLE
  4. IMURAN [Concomitant]
     Active Substance: AZATHIOPRINE
  5. PREDNISONE. [Concomitant]
     Active Substance: PREDNISONE
  6. NEXIUM [Suspect]
     Active Substance: ESOMEPRAZOLE MAGNESIUM
     Indication: GASTROOESOPHAGEAL REFLUX DISEASE
     Dosage: GENERIC
     Route: 048
     Dates: start: 2015, end: 2016
  7. CREON [Concomitant]
     Active Substance: PANCRELIPASE AMYLASE\PANCRELIPASE LIPASE\PANCRELIPASE PROTEASE
     Indication: PANCREATIC DISORDER
  8. NEXIUM [Suspect]
     Active Substance: ESOMEPRAZOLE MAGNESIUM
     Indication: GASTROOESOPHAGEAL REFLUX DISEASE
     Route: 048
     Dates: start: 1992, end: 2014
  9. NEXIUM [Suspect]
     Active Substance: ESOMEPRAZOLE MAGNESIUM
     Indication: GASTROOESOPHAGEAL REFLUX DISEASE
     Dosage: GENERIC
     Route: 048
     Dates: start: 2014
  10. PROTONIX [Concomitant]
     Active Substance: PANTOPRAZOLE SODIUM
  11. PRILOSEC [Suspect]
     Active Substance: OMEPRAZOLE MAGNESIUM
     Indication: GASTRIC ULCER
     Route: 048
     Dates: start: 1990, end: 1992
  12. XIFAXAN [Concomitant]
     Active Substance: RIFAXIMIN
     Indication: GASTRIC DISORDER
     Dates: start: 2015
  13. CELLCEPT [Concomitant]
     Active Substance: MYCOPHENOLATE MOFETIL\MYCOPHENOLATE MOFETIL HYDROCHLORIDE
  14. PEPCID [Concomitant]
     Active Substance: FAMOTIDINE
  15. ACIPHEX [Concomitant]
     Active Substance: RABEPRAZOLE SODIUM

REACTIONS (41)
  - Embolism [Unknown]
  - Spinal cord compression [Unknown]
  - Neuropathy peripheral [Unknown]
  - Chronic kidney disease [Unknown]
  - Interstitial lung disease [Unknown]
  - Intentional product use issue [Unknown]
  - Ankle fracture [Unknown]
  - Pneumonia viral [Unknown]
  - Body height decreased [Unknown]
  - Adrenal insufficiency [Unknown]
  - Functional gastrointestinal disorder [Unknown]
  - Haemorrhage [Unknown]
  - Pancreatic enzymes increased [Not Recovered/Not Resolved]
  - Coeliac disease [Unknown]
  - Osteoporosis [Unknown]
  - Vasculitis [Unknown]
  - Migraine [Unknown]
  - Diarrhoea [Unknown]
  - Burns third degree [Unknown]
  - Accident at home [Unknown]
  - Intestinal stenosis [Unknown]
  - Vitamin D deficiency [Unknown]
  - Gastroenteritis viral [Unknown]
  - Foot fracture [Unknown]
  - Ulcer haemorrhage [Unknown]
  - Spinal compression fracture [Unknown]
  - Thrombosis [Unknown]
  - Pathological fracture [Unknown]
  - Wrist fracture [Unknown]
  - Hypokalaemia [Unknown]
  - Abdominal distension [Unknown]
  - Dyspepsia [Unknown]
  - Pain [Unknown]
  - Adrenal atrophy [Unknown]
  - Fall [Unknown]
  - Paraplegia [Unknown]
  - Renal failure [Unknown]
  - Impaired gastric emptying [Recovered/Resolved]
  - Gastrointestinal bacterial overgrowth [Unknown]
  - Hypothyroidism [Unknown]
  - Off label use [Unknown]

NARRATIVE: CASE EVENT DATE: 1992
